FAERS Safety Report 17245217 (Version 1)
Quarter: 2020Q1

REPORT INFORMATION
  Report Type: Spontaneous
  Country: US (occurrence: US)
  Receive Date: 20200108
  Receipt Date: 20200108
  Transmission Date: 20200409
  Serious: Yes (Other)
  Sender: FDA-Public Use
  Company Number: US-ROCHE-2471693

PATIENT
  Age: 5 Year
  Sex: Female

DRUGS (1)
  1. RITUXAN [Suspect]
     Active Substance: RITUXIMAB
     Indication: NEUROMYELITIS OPTICA SPECTRUM DISORDER
     Dosage: UNKNOWN
     Route: 065

REACTIONS (4)
  - Blindness [Unknown]
  - Product use in unapproved indication [Unknown]
  - Off label use [Unknown]
  - Treatment failure [Unknown]
